FAERS Safety Report 9061657 (Version 4)
Quarter: 2013Q2

REPORT INFORMATION
  Report Type: Report from Study
  Country: DE (occurrence: DE)
  Receive Date: 20130204
  Receipt Date: 20130514
  Transmission Date: 20140414
  Serious: Yes (Hospitalization, Other)
  Sender: FDA-Public Use
  Company Number: DE-BRISTOL-MYERS SQUIBB COMPANY-17315201

PATIENT
  Age: 74 Year
  Sex: Female

DRUGS (4)
  1. IPILIMUMAB [Suspect]
     Indication: MALIGNANT MELANOMA
     Dosage: 186MG?7DEC12-7DEC12?28DEC12-28DEC12
     Route: 042
     Dates: start: 20121207
  2. SPIRO [Concomitant]
     Dates: start: 2009
  3. METOPROLOL [Concomitant]
     Dates: start: 2009
  4. PANTOZOL [Concomitant]
     Dates: start: 2009

REACTIONS (5)
  - Colitis [Unknown]
  - Autoimmune hepatitis [Recovered/Resolved]
  - Infection [Recovered/Resolved]
  - Rash [Recovered/Resolved]
  - Pyrexia [Recovered/Resolved]
